FAERS Safety Report 15432748 (Version 1)
Quarter: 2018Q3

REPORT INFORMATION
  Report Type: Report from Study
  Country: AT (occurrence: AT)
  Receive Date: 20180927
  Receipt Date: 20180927
  Transmission Date: 20181010
  Serious: Yes (Hospitalization)
  Sender: FDA-Public Use
  Company Number: AT-ROCHE-2188858

PATIENT
  Age: 58 Year
  Sex: Female
  Weight: 75 kg

DRUGS (18)
  1. TRASTUZUMAB. [Suspect]
     Active Substance: TRASTUZUMAB
     Indication: HER-2 POSITIVE BREAST CANCER
     Dosage: MOST RECENT DOSE ON 14/MAR/2018
     Route: 042
     Dates: start: 20170321, end: 20170523
  2. TAXOL [Suspect]
     Active Substance: PACLITAXEL
     Indication: HER-2 POSITIVE BREAST CANCER
     Dosage: MOST RECENT DOSE ON 06/JUN/2017
     Route: 042
     Dates: start: 20170321, end: 20170523
  3. SERACTIL [Concomitant]
     Active Substance: DEXIBUPROFEN
     Indication: MUSCULOSKELETAL PAIN
     Dosage: ONGOING = CHECKED
     Route: 065
     Dates: start: 20170919
  4. ZOFRAN [Concomitant]
     Active Substance: ONDANSETRON HYDROCHLORIDE
     Dosage: ONGOING = CHECKED
     Route: 065
     Dates: start: 20170923
  5. TRAMAL RETARD [Concomitant]
     Active Substance: TRAMADOL
     Dosage: ONGOING = CHECKED
     Route: 065
     Dates: start: 20180425
  6. CEOLAT [Concomitant]
     Dosage: ONGOING = CHECKED
     Route: 065
  7. XGEVA [Concomitant]
     Active Substance: DENOSUMAB
     Dosage: ONGOING = CHECKED
     Route: 065
     Dates: start: 20170613
  8. GUTTALAX [Concomitant]
     Dosage: ONGOING = CHECKED
     Route: 065
     Dates: start: 20171023
  9. PERTUZUMAB. [Suspect]
     Active Substance: PERTUZUMAB
     Indication: HER-2 POSITIVE BREAST CANCER
     Dosage: MOST RECENT DOSE ON 14/MAR/2018
     Route: 042
     Dates: start: 20170321, end: 20170523
  10. CITALOPRAM [Concomitant]
     Active Substance: CITALOPRAM HYDROBROMIDE
     Dosage: ONGOING = CHECKED
     Route: 065
  11. HALDOL [Concomitant]
     Active Substance: HALOPERIDOL
     Dosage: ONGOING = CHECKED
     Route: 065
     Dates: start: 20171023
  12. NEXIUM [Concomitant]
     Active Substance: ESOMEPRAZOLE MAGNESIUM
     Indication: GASTROENTERITIS RADIATION
     Dosage: ONGOING = CHECKED
     Route: 065
     Dates: start: 20180115
  13. KREON [Concomitant]
     Active Substance: PANCRELIPASE
     Indication: GASTROENTERITIS RADIATION
     Dosage: ONGOING = CHECKED
     Route: 065
     Dates: start: 20180215
  14. LYRICA [Concomitant]
     Active Substance: PREGABALIN
     Indication: MUSCULOSKELETAL PAIN
     Dosage: ONGOING = CHECKED
     Route: 065
     Dates: start: 20180129
  15. VERTIROSAN (AUSTRIA) [Concomitant]
     Dosage: ONGOING = CHECKED
     Route: 065
     Dates: start: 20171023
  16. MOLAXOLE [Concomitant]
     Active Substance: POLYETHYLENE GLYCOL 3350\POTASSIUM CHLORIDE\SODIUM BICARBONATE\SODIUM CHLORIDE
     Dosage: ONGOING = CHECKED
     Route: 065
     Dates: start: 20171023
  17. NOVALGIN (AUSTRIA) [Concomitant]
     Dosage: ONGOING = CHECKED
     Route: 065
     Dates: start: 20180425
  18. NORGESIC (AUSTRIA) [Concomitant]
     Dosage: ONGOING = CHECKED
     Route: 065

REACTIONS (3)
  - Vomiting [Recovered/Resolved]
  - Ileus [Recovered/Resolved]
  - Abdominal pain upper [Recovered/Resolved]

NARRATIVE: CASE EVENT DATE: 20180819
